FAERS Safety Report 8816762 (Version 1)
Quarter: 2012Q4

REPORT INFORMATION
  Report Type: Spontaneous
  Country: US (occurrence: None)
  Receive Date: 20121001
  Receipt Date: 20121001
  Transmission Date: 20130627
  Serious: Yes (Hospitalization, Other)
  Sender: FDA-Public Use
  Company Number: 2012P1058782

PATIENT
  Age: 18 Year
  Sex: Female

DRUGS (4)
  1. EPINEPHRINE [Suspect]
     Indication: VASOCONSTRICTION
     Route: 058
     Dates: start: 200507, end: 200507
  2. EPINEPHRINE [Suspect]
     Indication: ANAESTHESIA
     Route: 058
     Dates: start: 200507, end: 200507
  3. XYLOCAINE 2% [Concomitant]
  4. UNSPECIFIED GENERAL ANESTHETICS [Concomitant]

REACTIONS (6)
  - Sinus tachycardia [None]
  - Blood pressure decreased [None]
  - Productive cough [None]
  - Cardiac failure congestive [None]
  - Pulmonary oedema [None]
  - Stress cardiomyopathy [None]
